FAERS Safety Report 12212375 (Version 3)
Quarter: 2016Q2

REPORT INFORMATION
  Report Type: Spontaneous
  Country: FR (occurrence: FR)
  Receive Date: 20160325
  Receipt Date: 20160530
  Transmission Date: 20160815
  Serious: Yes (Other)
  Sender: FDA-Public Use
  Company Number: FR-TAKEDA-2016TUS005227

PATIENT
  Age: 58 Year
  Sex: Male
  Weight: 82 kg

DRUGS (1)
  1. ADENURIC [Suspect]
     Active Substance: FEBUXOSTAT
     Indication: HYPERURICAEMIA
     Dosage: 80 MG, QD
     Route: 048
     Dates: start: 20150716, end: 20160210

REACTIONS (2)
  - Thrombophlebitis [Recovering/Resolving]
  - Pulmonary embolism [Recovering/Resolving]

NARRATIVE: CASE EVENT DATE: 20160210
